FAERS Safety Report 8245385-3 (Version None)
Quarter: 2012Q1

REPORT INFORMATION
  Report Type: 
  Country: None (occurrence: None)
  Receive Date: 20120329
  Receipt Date: 20120319
  Transmission Date: 20120608
  Serious: Yes (Hospitalization)
  Sender: FDA-Public Use
  Company Number: IT-FRI-1000029398

PATIENT
  Sex: Female

DRUGS (4)
  1. ESCITALOPRAM [Suspect]
     Indication: INTENTIONAL SELF-INJURY
     Dosage: OVERDOSE: 30 MG
     Route: 048
     Dates: start: 20091213, end: 20091213
  2. ESCITALOPRAM [Suspect]
     Indication: DEPRESSION
     Route: 048
     Dates: start: 20091101, end: 20091213
  3. FLUTICASONE PROPIONATE/SALMETEROL [Concomitant]
  4. SALMETEROL+ FLUTICASONE PROPIONATE [Concomitant]

REACTIONS (4)
  - BRADYKINESIA [None]
  - INTENTIONAL OVERDOSE [None]
  - SOPOR [None]
  - BRADYPHRENIA [None]
